FAERS Safety Report 7368912-7 (Version None)
Quarter: 2011Q1

REPORT INFORMATION
  Report Type: 
  Country: None (occurrence: None)
  Receive Date: 20110323
  Receipt Date: 20101207
  Transmission Date: 20110831
  Serious: Yes (Hospitalization)
  Sender: FDA-Public Use
  Company Number: US-BAYER-201038231NA

PATIENT
  Sex: Female
  Weight: 99.5 kg

DRUGS (10)
  1. LIPITOR [Concomitant]
     Dosage: 20 MG, QD
     Dates: start: 20051019
  2. YASMIN [Suspect]
     Indication: PREMENSTRUAL SYNDROME
  3. LEXAPRO [Concomitant]
     Dosage: UNK
     Dates: start: 20051114
  4. GLUCOPHAGE XR [Concomitant]
     Indication: INSULIN RESISTANCE
     Dosage: 500 MG, QD
     Dates: start: 20051019
  5. YASMIN [Suspect]
     Indication: ACNE
     Dosage: UNK
     Dates: start: 20050101
  6. EFFEXOR [Concomitant]
     Dosage: UNK
     Dates: start: 20050801, end: 20051001
  7. METFORMIN [Concomitant]
     Dosage: 500 MG, QD
  8. YASMIN [Suspect]
  9. KLONOPIN [Concomitant]
     Dosage: UNK
     Dates: start: 20050801
  10. WELLBUTRIN [Concomitant]
     Dosage: 150 MG, QD
     Dates: start: 20051019

REACTIONS (3)
  - ACUTE MYOCARDIAL INFARCTION [None]
  - CHEST PAIN [None]
  - MENTAL DISORDER [None]
